FAERS Safety Report 7087822-6 (Version None)
Quarter: 2010Q4

REPORT INFORMATION
  Report Type: 
  Country: None (occurrence: None)
  Receive Date: 20101108
  Receipt Date: 20101025
  Transmission Date: 20110411
  Serious: No
  Sender: FDA-Public Use
  Company Number: JP-JNJFOC-20101100020

PATIENT
  Age: 72 Year
  Sex: Female

DRUGS (1)
  1. DUROTEP MT PATCH [Suspect]
     Indication: CANCER PAIN
     Route: 062

REACTIONS (5)
  - CONDITION AGGRAVATED [None]
  - DRUG PRESCRIBING ERROR [None]
  - MUSCULAR WEAKNESS [None]
  - NEOPLASM MALIGNANT [None]
  - WRONG TECHNIQUE IN DRUG USAGE PROCESS [None]
